FAERS Safety Report 20012827 (Version 1)
Quarter: 2021Q4

REPORT INFORMATION
  Report Type: Spontaneous
  Country: US (occurrence: US)
  Receive Date: 20211029
  Receipt Date: 20211029
  Transmission Date: 20220303
  Serious: Yes (Hospitalization)
  Sender: FDA-Public Use
  Company Number: US-GW PHARMA-202108USGW04017

PATIENT

DRUGS (1)
  1. EPIDIOLEX [Suspect]
     Active Substance: CANNABIDIOL
     Indication: Product used for unknown indication
     Dosage: 140 MILLIGRAM, BID (20.58 MG/KG)
     Route: 048
     Dates: start: 20191002

REACTIONS (2)
  - Pneumonia [Unknown]
  - Hospitalisation [Not Recovered/Not Resolved]
